FAERS Safety Report 4301298-0 (Version None)
Quarter: 2004Q1

REPORT INFORMATION
  Report Type: 
  Country: None (occurrence: None)
  Receive Date: 20040220
  Receipt Date: 20040220
  Transmission Date: 20041129
  Serious: Yes (Hospitalization)
  Sender: FDA-Public Use
  Company Number: None

PATIENT
  Age: 73 Year
  Sex: Female

DRUGS (6)
  1. CARDIZEM [Suspect]
     Indication: HYPERTENSION
     Dosage: 360 MG PO QD
     Route: 048
  2. LOPRESSOR [Suspect]
     Indication: HYPERTENSION
     Dosage: 50 MG PO QD
     Route: 048
  3. FLOVENT [Concomitant]
  4. ALBUTEROL [Concomitant]
  5. LORAZEPAM [Concomitant]
  6. CARBAMAZEPINE [Concomitant]

REACTIONS (2)
  - DIZZINESS [None]
  - SYNCOPE [None]
